FAERS Safety Report 24406859 (Version 1)
Quarter: 2024Q4

REPORT INFORMATION
  Report Type: Spontaneous
  Country: FR (occurrence: FR)
  Receive Date: 20241007
  Receipt Date: 20241007
  Transmission Date: 20250115
  Serious: Yes (Hospitalization, Other)
  Sender: MYLAN
  Company Number: None

PATIENT
  Age: 25 Year
  Sex: Male
  Weight: 81 kg

DRUGS (11)
  1. TRAMADOL [Suspect]
     Active Substance: TRAMADOL
     Indication: Product used for unknown indication
     Dosage: 100 MG LP IN THE MORNING + 50 MG IF NEEDED
     Route: 048
     Dates: start: 20240621, end: 20240621
  2. ALPRAZOLAM [Suspect]
     Active Substance: ALPRAZOLAM
     Indication: Product used for unknown indication
     Dosage: UNK
     Route: 048
     Dates: start: 20240621, end: 20240621
  3. ARIPIPRAZOLE [Suspect]
     Active Substance: ARIPIPRAZOLE
     Indication: Product used for unknown indication
     Dosage: UNK
     Route: 048
     Dates: start: 20240621, end: 20240621
  4. DIAZEPAM [Suspect]
     Active Substance: DIAZEPAM
     Indication: Product used for unknown indication
     Dosage: UNK
     Route: 048
     Dates: start: 20240621, end: 20240621
  5. METHADONE [Suspect]
     Active Substance: METHADONE HYDROCHLORIDE
     Indication: Product used for unknown indication
     Dosage: UNK
     Route: 065
     Dates: start: 20240621, end: 20240621
  6. QUETIAPINE [Concomitant]
     Active Substance: QUETIAPINE
     Dosage: UNK
     Route: 065
  7. OMEPRAZOLE SODIUM [Concomitant]
     Active Substance: OMEPRAZOLE SODIUM
     Dosage: UNK
     Route: 065
  8. FLUOXETINE [Concomitant]
     Active Substance: FLUOXETINE HYDROCHLORIDE
     Dosage: UNK
     Route: 065
  9. LEVOMEPROMAZINE [Concomitant]
     Active Substance: LEVOMEPROMAZINE
     Dosage: UNK
     Route: 065
  10. OXAZEPAM [Concomitant]
     Active Substance: OXAZEPAM
     Dosage: UNK
     Route: 065
  11. ATENOLOL [Concomitant]
     Active Substance: ATENOLOL
     Dosage: UNK
     Route: 065

REACTIONS (3)
  - Coma [Recovered/Resolved]
  - Poisoning deliberate [Unknown]
  - Intentional overdose [Recovered/Resolved]

NARRATIVE: CASE EVENT DATE: 20240621
